FAERS Safety Report 15434800 (Version 1)
Quarter: 2018Q3

REPORT INFORMATION
  Report Type: Spontaneous
  Country: US (occurrence: US)
  Receive Date: 20180922
  Receipt Date: 20180922
  Transmission Date: 20181010
  Serious: Yes (Other)
  Sender: FDA-Public Use
  Company Number: None

PATIENT
  Age: 50 Year
  Sex: Female
  Weight: 73.35 kg

DRUGS (5)
  1. MINIPRESS (1MG X3 PER NIGHT) [Concomitant]
  2. TRAZODONE (40MG REDUCED TO 20MG 18?SEP?2018? EVENTUALLY ELIMINATION) [Concomitant]
  3. LEXAPRO (20MG REDUCED TO 10MG 18?SEP?2018? EVENTUALLY ELIMINATION) [Concomitant]
  4. DEXTROAMPHET SACCHARAT, AMPHET ASPARTATE, DEXTROAMPHET SULFATE AND AMPHET SULFAT [Suspect]
     Active Substance: AMPHETAMINE ASPARTATE\AMPHETAMINE SULFATE\DEXTROAMPHETAMINE SACCHARATE\DEXTROAMPHETAMINE SULFATE
     Indication: ATTENTION DEFICIT/HYPERACTIVITY DISORDER
     Dosage: ?          QUANTITY:1 CAPSULE(S);?
     Route: 048
     Dates: start: 20180815, end: 20180913
  5. EFFEXOR (75MG X3 PER DAY) [Concomitant]

REACTIONS (4)
  - Alanine aminotransferase increased [None]
  - Heart rate increased [None]
  - Product substitution issue [None]
  - Aspartate aminotransferase increased [None]

NARRATIVE: CASE EVENT DATE: 20180912
